FAERS Safety Report 11520016 (Version 1)
Quarter: 2015Q3

REPORT INFORMATION
  Report Type: Spontaneous
  Country: US (occurrence: US)
  Receive Date: 20150918
  Receipt Date: 20150918
  Transmission Date: 20151125
  Serious: No
  Sender: FDA-Public Use
  Company Number: US-RB-069092-14

PATIENT

DRUGS (2)
  1. MUCINEX [Suspect]
     Active Substance: GUAIFENESIN
     Indication: RESPIRATORY TRACT CONGESTION
  2. MUCINEX [Suspect]
     Active Substance: GUAIFENESIN
     Indication: NASAL CONGESTION
     Dosage: . TAKE AN UNKNOWN AMOUNT 1 EVERY 12 HOURS,FREQUENCY UNK
     Route: 065
     Dates: start: 20140912

REACTIONS (1)
  - Drug ineffective [Not Recovered/Not Resolved]
